FAERS Safety Report 14586120 (Version 1)
Quarter: 2018Q1

REPORT INFORMATION
  Report Type: Report from Study
  Country: BR (occurrence: BR)
  Receive Date: 20180301
  Receipt Date: 20180301
  Transmission Date: 20180509
  Serious: Yes (Hospitalization)
  Sender: FDA-Public Use
  Company Number: PHHY2018BR032116

PATIENT
  Age: 79 Year
  Sex: Male
  Weight: 57 kg

DRUGS (2)
  1. EXELON [Suspect]
     Active Substance: RIVASTIGMINE TARTRATE
     Indication: DEMENTIA ALZHEIMER^S TYPE
     Dosage: 3 MG, BID
     Route: 048
     Dates: end: 20180216
  2. EXELON PATCH [Suspect]
     Active Substance: RIVASTIGMINE
     Indication: DEMENTIA ALZHEIMER^S TYPE
     Dosage: 4.6 MG, QD PATCH 5 (CM2)
     Route: 062

REACTIONS (11)
  - Hypersensitivity [Recovering/Resolving]
  - Vomiting [Recovered/Resolved]
  - Nausea [Recovered/Resolved]
  - Vomiting [Recovered/Resolved]
  - Application site hypersensitivity [Not Recovered/Not Resolved]
  - Anal incontinence [Recovering/Resolving]
  - Application site erythema [Recovering/Resolving]
  - Application site irritation [Recovered/Resolved]
  - Application site pruritus [Not Recovered/Not Resolved]
  - Diarrhoea [Recovering/Resolving]
  - Gastroenteritis [Recovered/Resolved]

NARRATIVE: CASE EVENT DATE: 20180216
